FAERS Safety Report 19748664 (Version 2)
Quarter: 2021Q4

REPORT INFORMATION
  Report Type: Report from Study
  Country: US (occurrence: US)
  Receive Date: 20210826
  Receipt Date: 20211102
  Transmission Date: 20220303
  Serious: Yes (Hospitalization)
  Sender: FDA-Public Use
  Company Number: US-ABBVIE-21K-163-4002918-00

PATIENT
  Sex: Female

DRUGS (4)
  1. HUMIRA [Suspect]
     Active Substance: ADALIMUMAB
     Indication: Colitis ulcerative
     Dosage: DAY 1
     Route: 058
     Dates: start: 20210716, end: 20210716
  2. HUMIRA [Suspect]
     Active Substance: ADALIMUMAB
     Dosage: DAY 15
     Route: 058
     Dates: start: 20210730, end: 20210730
  3. HUMIRA [Suspect]
     Active Substance: ADALIMUMAB
     Indication: Colitis ulcerative
     Route: 058
     Dates: start: 2021
  4. BUDESONIDE [Concomitant]
     Active Substance: BUDESONIDE
     Indication: Product used for unknown indication

REACTIONS (20)
  - Dizziness [Unknown]
  - Malaise [Unknown]
  - Asthenia [Unknown]
  - Frequent bowel movements [Recovering/Resolving]
  - Mucous stools [Unknown]
  - Constipation [Unknown]
  - Decreased appetite [Unknown]
  - Defaecation urgency [Unknown]
  - Flatulence [Not Recovered/Not Resolved]
  - Burning sensation [Unknown]
  - Blood iron decreased [Unknown]
  - Abdominal distension [Recovering/Resolving]
  - Haematochezia [Unknown]
  - Abdominal pain [Unknown]
  - Proctalgia [Unknown]
  - Muscle spasms [Recovering/Resolving]
  - Nausea [Unknown]
  - Arthralgia [Unknown]
  - Diarrhoea [Unknown]
  - Nasopharyngitis [Recovered/Resolved]

NARRATIVE: CASE EVENT DATE: 20210101
